FAERS Safety Report 17734012 (Version 1)
Quarter: 2020Q2

REPORT INFORMATION
  Report Type: Spontaneous
  Country: US (occurrence: US)
  Receive Date: 20200501
  Receipt Date: 20200501
  Transmission Date: 20200714
  Serious: Yes (Other)
  Sender: FDA-Public Use
  Company Number: None

PATIENT
  Age: 67 Year
  Sex: Female
  Weight: 67.5 kg

DRUGS (1)
  1. PRALUENT [Suspect]
     Active Substance: ALIROCUMAB
     Indication: LOW DENSITY LIPOPROTEIN INCREASED
     Dosage: ?          QUANTITY:1 INJECTION(S);OTHER FREQUENCY:BI-MONTHLY;?
     Route: 058
     Dates: start: 20200214, end: 20200410

REACTIONS (5)
  - Myalgia [None]
  - Cough [None]
  - Nasopharyngitis [None]
  - Influenza [None]
  - Malaise [None]

NARRATIVE: CASE EVENT DATE: 20200228
